FAERS Safety Report 21768879 (Version 2)
Quarter: 2022Q4

REPORT INFORMATION
  Report Type: Report from Study
  Country: EG (occurrence: EG)
  Receive Date: 20221222
  Receipt Date: 20221227
  Transmission Date: 20230112
  Serious: Yes (Life-Threatening, Hospitalization)
  Sender: FDA-Public Use
  Company Number: EG-002147023-NVSC2022EG295609

PATIENT
  Age: 25 Year
  Sex: Male

DRUGS (5)
  1. TACROLIMUS [Suspect]
     Active Substance: TACROLIMUS
     Indication: Prophylaxis against transplant rejection
     Dosage: UNK
     Route: 048
     Dates: start: 20220727
  2. MYCOPHENOLATE MOFETIL [Suspect]
     Active Substance: MYCOPHENOLATE MOFETIL
     Indication: Product used for unknown indication
     Dosage: UNK, END DATE 3-4 DAYS AGO
     Route: 065
     Dates: start: 20220727
  3. MYFORTIC [Suspect]
     Active Substance: MYCOPHENOLATE SODIUM
     Indication: Surgery
     Dosage: UNK (STARTED IT AFTER THE SURGERY AND STOPPED AFTER ONE WEEK FROM THE SURGERY)
     Route: 065
  4. PROGRAF [Concomitant]
     Active Substance: TACROLIMUS
     Indication: Product used for unknown indication
     Dosage: UNK
     Route: 065
  5. CELLCEPT [Concomitant]
     Active Substance: MYCOPHENOLATE MOFETIL
     Indication: Product used for unknown indication
     Dosage: UNK (ALTERNATIVELY WITH MYCOPHENALATE MOFETIL, STOPPED IT SINCE 3-4 DAYS)
     Route: 065

REACTIONS (15)
  - Immunodeficiency [Not Recovered/Not Resolved]
  - Pyrexia [Not Recovered/Not Resolved]
  - Malaise [Not Recovered/Not Resolved]
  - Tremor [Not Recovered/Not Resolved]
  - Viral test positive [Unknown]
  - Blood creatinine increased [Unknown]
  - Drug level increased [Unknown]
  - Blood urine present [Unknown]
  - Enzyme level increased [Unknown]
  - Back pain [Unknown]
  - Abdominal pain [Unknown]
  - Urinary tract infection [Unknown]
  - Weight decreased [Unknown]
  - Gait disturbance [Unknown]
  - Musculoskeletal discomfort [Unknown]

NARRATIVE: CASE EVENT DATE: 20220727
